FAERS Safety Report 17131212 (Version 2)
Quarter: 2020Q1

REPORT INFORMATION
  Report Type: Spontaneous
  Country: FI (occurrence: FI)
  Receive Date: 20191209
  Receipt Date: 20200212
  Transmission Date: 20200409
  Serious: Yes (Other)
  Sender: FDA-Public Use
  Company Number: FI-JAZZ-2019-FI-017006

PATIENT
  Age: 20 Year
  Sex: Female

DRUGS (2)
  1. XYREM [Suspect]
     Active Substance: SODIUM OXYBATE
     Indication: NARCOLEPSY
     Dosage: UNKNOWN DOSE
     Route: 048
     Dates: start: 201904, end: 201908
  2. XYREM [Suspect]
     Active Substance: SODIUM OXYBATE
     Dosage: 3.75 GRAM, BID
     Route: 048
     Dates: start: 201908

REACTIONS (5)
  - Nightmare [Unknown]
  - Drug ineffective [Unknown]
  - Sleep paralysis [Unknown]
  - Product taste abnormal [Unknown]
  - Seizure [Unknown]

NARRATIVE: CASE EVENT DATE: 2019
